FAERS Safety Report 7554120-3 (Version None)
Quarter: 2011Q2

REPORT INFORMATION
  Report Type: 
  Country: None (occurrence: None)
  Receive Date: 20110614
  Receipt Date: 20110614
  Transmission Date: 20111010
  Serious: No
  Sender: FDA-Public Use
  Company Number: None

PATIENT
  Age: 16 Month
  Sex: Female
  Weight: 10.4327 kg

DRUGS (1)
  1. AZITHROMYCIN [Suspect]
     Indication: PHARYNGITIS STREPTOCOCCAL
     Dosage: 1 TSP FIRST DAY PO; .5 TSP NEXT 4 DAYS PO
     Route: 048
     Dates: start: 20110609, end: 20110611

REACTIONS (4)
  - RASH GENERALISED [None]
  - URTICARIA [None]
  - RASH MACULAR [None]
  - RASH ERYTHEMATOUS [None]
